FAERS Safety Report 15152575 (Version 2)
Quarter: 2018Q3

REPORT INFORMATION
  Report Type: Spontaneous
  Country: PL (occurrence: PL)
  Receive Date: 20180717
  Receipt Date: 20180723
  Transmission Date: 20181010
  Serious: Yes (Life-Threatening, Other)
  Sender: FDA-Public Use
  Company Number: PL-ROCHE-2154125

PATIENT
  Age: 78 Year
  Sex: Male
  Weight: 66 kg

DRUGS (7)
  1. CETIRIZINE [Concomitant]
     Active Substance: CETIRIZINE HYDROCHLORIDE
     Indication: MANTLE CELL LYMPHOMA
     Route: 048
     Dates: start: 20180709, end: 20180709
  2. ONDANSETRON [Concomitant]
     Active Substance: ONDANSETRON
  3. OXYGEN. [Concomitant]
     Active Substance: OXYGEN
  4. MABTHERA [Suspect]
     Active Substance: RITUXIMAB
     Indication: MANTLE CELL LYMPHOMA
     Route: 042
     Dates: start: 20180524, end: 20180709
  5. CORHYDRON (POLAND) [Concomitant]
     Active Substance: HYDROCORTISONE SODIUM SUCCINATE
     Indication: MANTLE CELL LYMPHOMA
     Route: 042
     Dates: start: 20180709, end: 20180709
  6. SOLU?MEDROL [Concomitant]
     Active Substance: METHYLPREDNISOLONE SODIUM SUCCINATE
     Route: 065
  7. PARACETAMOL [Concomitant]
     Active Substance: ACETAMINOPHEN
     Indication: MANTLE CELL LYMPHOMA
     Route: 042
     Dates: start: 20180709, end: 20180709

REACTIONS (5)
  - Oxygen saturation decreased [Unknown]
  - Rash generalised [Unknown]
  - Vomiting [Unknown]
  - Nausea [Unknown]
  - Blood pressure decreased [Unknown]
